FAERS Safety Report 4743199-X (Version None)
Quarter: 2005Q3

REPORT INFORMATION
  Report Type: 
  Country: None (occurrence: None)
  Receive Date: 20050809
  Receipt Date: 20050722
  Transmission Date: 20060218
  Serious: Yes (Death, Hospitalization)
  Sender: FDA-Public Use
  Company Number: US-2005-010343

PATIENT
  Age: 76 Year
  Sex: Female

DRUGS (5)
  1. BETASERON [Suspect]
     Indication: MULTIPLE SCLEROSIS
     Dosage: 8 MIU, EVERY 2 D, SUBCUTANEOUS
     Route: 058
     Dates: start: 19930101, end: 20050612
  2. LEVOTHROID [Concomitant]
  3. ZOLOFT [Concomitant]
  4. FLOMAX [Concomitant]
  5. MULTIVITAMIN [Concomitant]

REACTIONS (4)
  - CEREBROVASCULAR ACCIDENT [None]
  - DYSPHAGIA [None]
  - PNEUMONIA ASPIRATION [None]
  - UPPER GASTROINTESTINAL HAEMORRHAGE [None]
